FAERS Safety Report 5722450-3 (Version None)
Quarter: 2008Q2

REPORT INFORMATION
  Report Type: 
  Country: None (occurrence: None)
  Receive Date: 20080429
  Receipt Date: 20070628
  Transmission Date: 20081010
  Serious: Yes (Other)
  Sender: FDA-Public Use
  Company Number: US-ASTRAZENECA-2007UW15404

PATIENT
  Age: 54 Year
  Sex: Female
  Weight: 45.4 kg

DRUGS (5)
  1. ESOMEPRAZOLE [Suspect]
     Indication: GASTROOESOPHAGEAL REFLUX DISEASE
     Dosage: TOOK NEXIUM FOR 2 TO 5 DAYS DURING THE WEEK OF JUNE 2, 2007
     Route: 048
     Dates: end: 20070609
  2. ESOMEPRAZOLE [Suspect]
     Route: 048
     Dates: start: 20070616, end: 20070618
  3. LIPITOR [Concomitant]
  4. FOSAMAX [Concomitant]
  5. ASPIRIN [Concomitant]

REACTIONS (5)
  - ABDOMINAL DISTENSION [None]
  - BLOOD CHOLESTEROL INCREASED [None]
  - BLOOD PRESSURE INCREASED [None]
  - FACE OEDEMA [None]
  - OEDEMA PERIPHERAL [None]
